FAERS Safety Report 23508354 (Version 2)
Quarter: 2024Q1

REPORT INFORMATION
  Report Type: Spontaneous
  Country: RU (occurrence: RU)
  Receive Date: 20240209
  Receipt Date: 20240308
  Transmission Date: 20240409
  Serious: Yes (Hospitalization, Other)
  Sender: FDA-Public Use
  Company Number: RU-BIOGEN-2024BI01249139

PATIENT
  Age: 30 Year
  Sex: Female
  Weight: 65 kg

DRUGS (1)
  1. TYSABRI [Suspect]
     Active Substance: NATALIZUMAB
     Indication: Multiple sclerosis
     Dosage: (20 MG/ML, 15 ML) PER 250 ML SALINE. INTRAVENOUS DRIP SOLUTION (15 INFUSIONS WERE PERFORMED).
     Route: 050
     Dates: start: 20221222

REACTIONS (3)
  - Foetal growth restriction [Recovered/Resolved]
  - Abortion spontaneous [Recovered/Resolved]
  - Maternal exposure during pregnancy [Recovered/Resolved]

NARRATIVE: CASE EVENT DATE: 20231116
